FAERS Safety Report 19222532 (Version 1)
Quarter: 2021Q2

REPORT INFORMATION
  Report Type: Spontaneous
  Country: IT (occurrence: IT)
  Receive Date: 20210506
  Receipt Date: 20210506
  Transmission Date: 20210717
  Serious: Yes (Other)
  Sender: FDA-Public Use
  Company Number: IT-ACCORD-223872

PATIENT
  Age: 66 Year
  Sex: Male

DRUGS (3)
  1. CARBOPLATIN. [Suspect]
     Active Substance: CARBOPLATIN
     Indication: METASTASES TO LYMPH NODES
  2. TAXOL [Suspect]
     Active Substance: PACLITAXEL
     Indication: INTRADUCTAL PAPILLARY MUCINOUS NEOPLASM
  3. CARBOPLATIN. [Suspect]
     Active Substance: CARBOPLATIN
     Indication: INTRADUCTAL PAPILLARY MUCINOUS NEOPLASM

REACTIONS (2)
  - Neurotoxicity [Unknown]
  - Off label use [Unknown]
